FAERS Safety Report 12166912 (Version 1)
Quarter: 2016Q1

REPORT INFORMATION
  Report Type: Spontaneous
  Country: US (occurrence: US)
  Receive Date: 20160310
  Receipt Date: 20160310
  Transmission Date: 20160526
  Serious: Yes (Hospitalization)
  Sender: FDA-Public Use
  Company Number: US-BAUSCH-BL-2016-005454

PATIENT
  Age: 71 Year
  Sex: Male
  Weight: 111.23 kg

DRUGS (1)
  1. PROVENGE [Suspect]
     Active Substance: SIPULEUCEL-T
     Indication: PROSTATE CANCER
     Route: 042

REACTIONS (3)
  - Back pain [Unknown]
  - Abscess [Unknown]
  - Spinal pain [Unknown]

NARRATIVE: CASE EVENT DATE: 20160229
